FAERS Safety Report 13476781 (Version 1)
Quarter: 2017Q2

REPORT INFORMATION
  Report Type: Spontaneous
  Country: GB (occurrence: None)
  Receive Date: 20170424
  Receipt Date: 20170424
  Transmission Date: 20170830
  Serious: Yes (Hospitalization)
  Sender: FDA-Public Use
  Company Number: GB2017K2650SPO

PATIENT
  Age: 78 Year
  Sex: Female
  Weight: 90 kg

DRUGS (5)
  1. BISOPROLOL [Concomitant]
     Active Substance: BISOPROLOL
  2. LANSOPRAZOLE GENERIC (LANSOPRAZOLE) UNKNOWN [Suspect]
     Active Substance: LANSOPRAZOLE
     Dosage: DOSE - 15MG - ONCE WHEN SYMPTOMS FLARE, ORAL
     Route: 048
  3. WARFARIN [Concomitant]
     Active Substance: WARFARIN
  4. CO-CODAMOL (CODEINE, PHOSPHATE, PARACETAMOL) [Concomitant]
  5. LOSARTAN (LOSARTAN) [Concomitant]
     Active Substance: LOSARTAN

REACTIONS (7)
  - Nausea [None]
  - C-reactive protein increased [None]
  - Hypomagnesaemia [None]
  - Abnormal loss of weight [None]
  - Inadequate diet [None]
  - Blood calcium decreased [None]
  - Gallbladder cancer [None]
